FAERS Safety Report 6985590-7 (Version None)
Quarter: 2010Q3

REPORT INFORMATION
  Report Type: 
  Country: None (occurrence: None)
  Receive Date: 20100915
  Receipt Date: 20100528
  Transmission Date: 20110219
  Serious: No
  Sender: FDA-Public Use
  Company Number: A0861946A

PATIENT
  Age: 32 Year
  Sex: Female

DRUGS (1)
  1. NICORETTE (MINT) [Suspect]
     Dates: start: 20100521

REACTIONS (4)
  - ABDOMINAL DISCOMFORT [None]
  - GINGIVAL DISORDER [None]
  - ORAL PAIN [None]
  - OROPHARYNGEAL PAIN [None]
